FAERS Safety Report 8178235-4 (Version None)
Quarter: 2012Q1

REPORT INFORMATION
  Report Type: 
  Country: None (occurrence: None)
  Receive Date: 20120301
  Receipt Date: 20120227
  Transmission Date: 20120608
  Serious: Yes (Hospitalization, Other)
  Sender: FDA-Public Use
  Company Number: PHEH2011US03975

PATIENT
  Sex: Male

DRUGS (5)
  1. MULTI-VITAMINS [Concomitant]
  2. TEGRETOL [Concomitant]
     Dosage: 800 MG, DAILY
  3. LIDOCAINE [Concomitant]
     Indication: TRIGEMINAL NEURALGIA
  4. EXTAVIA [Suspect]
     Indication: MULTIPLE SCLEROSIS
     Dosage: 0.125 MG, QOD
     Route: 058
     Dates: start: 20110907, end: 20120111
  5. EXTAVIA [Suspect]
     Dosage: 0.125 MG, QOD
     Route: 058
     Dates: start: 20120126

REACTIONS (11)
  - PROSTATE CANCER [None]
  - NUCLEAR MAGNETIC RESONANCE IMAGING ABNORMAL [None]
  - SCAR [None]
  - INJECTION SITE PAIN [None]
  - HEADACHE [None]
  - FATIGUE [None]
  - PAIN [None]
  - INJECTION SITE MASS [None]
  - MALAISE [None]
  - PNEUMONIA [None]
  - WRONG TECHNIQUE IN DRUG USAGE PROCESS [None]
